FAERS Safety Report 8996794 (Version 1)
Quarter: 2012Q4

REPORT INFORMATION
  Report Type: Spontaneous
  Country: GB (occurrence: None)
  Receive Date: 20121220
  Receipt Date: 20121220
  Transmission Date: 20130627
  Serious: Yes (Life-Threatening)
  Sender: FDA-Public Use
  Company Number: 2012-22271

PATIENT
  Age: 59 Year
  Sex: Male

DRUGS (3)
  1. IBUPROFEN [Suspect]
     Indication: PAIN
     Route: 048
     Dates: start: 20070915, end: 20070918
  2. PARACETAMOL (PARACETAMOL) [Concomitant]
  3. OLANZAPINE (OLANZAPINE) [Concomitant]

REACTIONS (1)
  - Cardiac failure [None]
